FAERS Safety Report 11457320 (Version 5)
Quarter: 2016Q2

REPORT INFORMATION
  Report Type: Report from Study
  Country: US (occurrence: US)
  Receive Date: 20150904
  Receipt Date: 20160519
  Transmission Date: 20160815
  Serious: Yes (Hospitalization)
  Sender: FDA-Public Use
  Company Number: US-ROCHE-1628254

PATIENT
  Age: 53 Year
  Sex: Male
  Weight: 83.1 kg

DRUGS (5)
  1. ACETAMINOPHEN. [Concomitant]
     Active Substance: ACETAMINOPHEN
     Indication: INCISION SITE COMPLICATION
     Route: 048
     Dates: start: 20141021
  2. BEVACIZUMAB [Suspect]
     Active Substance: BEVACIZUMAB
     Indication: RENAL CELL CARCINOMA
     Dosage: DATE AND DOSAGE OF MOST RECENT DOSE PRIOR TO AE ONSET 27/AUG/2015 1312.5 MG
     Route: 042
     Dates: start: 20141114
  3. LISINOPRIL. [Concomitant]
     Active Substance: LISINOPRIL
     Indication: HYPERTENSION
     Route: 048
     Dates: start: 20150319
  4. ATEZOLIZUMAB [Suspect]
     Active Substance: ATEZOLIZUMAB
     Indication: RENAL CELL CARCINOMA
     Dosage: DATE AND DOSAGE OF MOST RECENT DOSE PRIOR TO AE ONSET 13/AUG/2015 1200 MG (CYCLE 8, DAY 1).
     Route: 042
     Dates: start: 20141114
  5. LEVOTHYROXINE. [Concomitant]
     Active Substance: LEVOTHYROXINE
     Indication: HYPOTHYROIDISM
     Route: 048
     Dates: start: 20150723

REACTIONS (1)
  - Diverticulitis [Recovered/Resolved]

NARRATIVE: CASE EVENT DATE: 20150827
